FAERS Safety Report 6450459-3 (Version None)
Quarter: 2009Q4

REPORT INFORMATION
  Report Type: 
  Country: None (occurrence: None)
  Receive Date: 20091123
  Receipt Date: 20091117
  Transmission Date: 20100525
  Serious: Yes (Hospitalization, Other)
  Sender: FDA-Public Use
  Company Number: NL-BAYER-200939497GPV

PATIENT
  Age: 71 Year
  Sex: Male

DRUGS (2)
  1. CIPROFLOXACIN [Suspect]
     Indication: LOCALISED INFECTION
     Dosage: TOTAL DAILY DOSE: 800 MG
     Route: 042
  2. CLINDAMYCIN [Concomitant]
     Indication: LOCALISED INFECTION
     Dosage: TOTAL DAILY DOSE: 1800 MG
     Route: 042

REACTIONS (6)
  - BURNING SENSATION [None]
  - ERYTHEMA [None]
  - GANGRENE [None]
  - PRURITUS [None]
  - PURPURA [None]
  - VASCULITIS [None]
